FAERS Safety Report 4604927-7 (Version None)
Quarter: 2005Q1

REPORT INFORMATION
  Report Type: 
  Country: None (occurrence: None)
  Receive Date: 20050310
  Receipt Date: 20050310
  Transmission Date: 20050727
  Serious: Yes (Hospitalization)
  Sender: FDA-Public Use
  Company Number: None

PATIENT
  Age: 64 Year
  Sex: Female

DRUGS (11)
  1. FLUDARABINE PHOSPHATE [Suspect]
     Indication: BONE MARROW CONDITIONING REGIMEN
     Dosage: 57 MG IV QD
     Route: 042
     Dates: start: 20041028, end: 20041101
  2. MELPHALAN [Suspect]
     Indication: STEM CELL TRANSPLANT
     Dosage: 270 MG
     Dates: start: 20041102
  3. CAMPATH [Suspect]
     Indication: STEM CELL TRANSPLANT
     Dosage: 20 MG IV QD
     Route: 042
     Dates: start: 20041028, end: 20041101
  4. PREDNISONE [Concomitant]
  5. TOPROL-XL [Concomitant]
  6. NORVASC [Concomitant]
  7. AVELOX [Concomitant]
  8. CYCLOSPORINE [Concomitant]
  9. ALBUTEROL [Concomitant]
  10. VORICONIZOLE [Concomitant]
  11. VALCYTE [Concomitant]

REACTIONS (7)
  - BACTERIAL INFECTION [None]
  - CRACKLES LUNG [None]
  - DIZZINESS [None]
  - FAILURE TO THRIVE [None]
  - FATIGUE [None]
  - NEUTROPENIA [None]
  - PRODUCTIVE COUGH [None]
